FAERS Safety Report 10272938 (Version 1)
Quarter: 2014Q3

REPORT INFORMATION
  Report Type: Spontaneous
  Country: DK (occurrence: FR)
  Receive Date: 20140702
  Receipt Date: 20140702
  Transmission Date: 20150326
  Serious: Yes (Hospitalization)
  Sender: FDA-Public Use
  Company Number: FR-FRI-1000068555

PATIENT
  Age: 90 Year
  Sex: Female

DRUGS (9)
  1. ARIXTRA [Suspect]
     Active Substance: FONDAPARINUX SODIUM
     Dosage: 2.5 MG / 0.5 ML
     Route: 058
     Dates: start: 20140305, end: 20140310
  2. RISPERDAL [Concomitant]
     Active Substance: RISPERIDONE
     Dosage: 1 MG
     Route: 048
  3. PLAVIX [Suspect]
     Active Substance: CLOPIDOGREL BISULFATE
     Dosage: 1 DF
     Route: 048
     Dates: end: 20140310
  4. DAFALGAN [Concomitant]
     Active Substance: ACETAMINOPHEN
  5. TRIATEC [Concomitant]
     Active Substance: RAMIPRIL
     Dosage: 2.5 MG
     Route: 048
  6. DUROGESIC [Concomitant]
     Active Substance: FENTANYL
     Dosage: 0.3333 DF
     Route: 062
  7. UVEDOSE [Concomitant]
     Active Substance: CHOLECALCIFEROL
     Route: 048
  8. ESCITALOPRAM [Suspect]
     Active Substance: ESCITALOPRAM OXALATE
     Dosage: 5 MG
     Route: 048
  9. SERESTA [Concomitant]
     Active Substance: OXAZEPAM
     Route: 048

REACTIONS (2)
  - Anaemia [Recovered/Resolved]
  - Melaena [Recovered/Resolved]

NARRATIVE: CASE EVENT DATE: 20140309
